FAERS Safety Report 25174698 (Version 2)
Quarter: 2025Q2

REPORT INFORMATION
  Report Type: Spontaneous
  Country: US (occurrence: US)
  Receive Date: 20250408
  Receipt Date: 20250416
  Transmission Date: 20250717
  Serious: Yes (Other)
  Sender: PFIZER
  Company Number: US-MLMSERVICE-20250326-PI457756-00271-2

PATIENT
  Age: 41 Year
  Sex: Female

DRUGS (9)
  1. METHYLPREDNISOLONE ACETATE [Suspect]
     Active Substance: METHYLPREDNISOLONE ACETATE
     Indication: Pulmonary alveolar haemorrhage
  2. METHYLPREDNISOLONE ACETATE [Suspect]
     Active Substance: METHYLPREDNISOLONE ACETATE
     Indication: Antisynthetase syndrome
  3. PREDNISONE [Suspect]
     Active Substance: PREDNISONE
     Indication: Antisynthetase syndrome
     Route: 048
  4. PREDNISONE [Suspect]
     Active Substance: PREDNISONE
     Indication: Pulmonary alveolar haemorrhage
     Dosage: 120 MG, 1X/DAY
  5. PREDNISONE [Suspect]
     Active Substance: PREDNISONE
     Dosage: 10 MG, 1X/DAY, TAPERED DOWN
  6. RITUXIMAB [Concomitant]
     Active Substance: RITUXIMAB
     Indication: Pulmonary alveolar haemorrhage
  7. RITUXIMAB [Concomitant]
     Active Substance: RITUXIMAB
  8. MYCOPHENOLATE MOFETIL [Concomitant]
     Active Substance: MYCOPHENOLATE MOFETIL
     Indication: Pulmonary alveolar haemorrhage
     Dosage: 2 G, 1X/DAY
  9. PLAQUENIL [Concomitant]
     Active Substance: HYDROXYCHLOROQUINE SULFATE
     Indication: Pulmonary alveolar haemorrhage
     Dosage: 400 MG, 1X/DAY

REACTIONS (4)
  - Forced vital capacity decreased [Unknown]
  - Forced expiratory volume decreased [Unknown]
  - Weight increased [Unknown]
  - Off label use [Unknown]
